FAERS Safety Report 12721384 (Version 1)
Quarter: 2016Q3

REPORT INFORMATION
  Report Type: Spontaneous
  Country: US (occurrence: US)
  Receive Date: 20160907
  Receipt Date: 20160907
  Transmission Date: 20161109
  Serious: Yes (Other)
  Sender: FDA-Public Use
  Company Number: None

PATIENT
  Sex: Female

DRUGS (1)
  1. PROGESTERONE, 200MG [Suspect]
     Active Substance: PROGESTERONE
     Route: 067

REACTIONS (2)
  - Haemorrhage [None]
  - Oral herpes [None]
